FAERS Safety Report 9858179 (Version 1)
Quarter: 2014Q1

REPORT INFORMATION
  Report Type: Spontaneous
  Country: US (occurrence: None)
  Receive Date: 20140130
  Receipt Date: 20140130
  Transmission Date: 20141002
  Serious: No
  Sender: FDA-Public Use
  Company Number: None

PATIENT
  Age: 64 Year
  Sex: Female
  Weight: 53.52 kg

DRUGS (7)
  1. PROLIA [Suspect]
     Indication: OSTEOPOROSIS
     Dates: start: 20130502
  2. ATORVASTATIN [Concomitant]
  3. ASPRIN [Concomitant]
  4. ESCITALOPRAM [Concomitant]
  5. MILTI VIT [Concomitant]
  6. FISH OIL [Concomitant]
  7. CALCIUM W/D [Concomitant]

REACTIONS (1)
  - Eczema [None]
